FAERS Safety Report 20387536 (Version 1)
Quarter: 2022Q1

REPORT INFORMATION
  Report Type: Spontaneous
  Country: CN (occurrence: CN)
  Receive Date: 20220127
  Receipt Date: 20220127
  Transmission Date: 20220423
  Serious: Yes (Other)
  Sender: FDA-Public Use
  Company Number: CN-BAXTER-2022BAX001716

PATIENT
  Age: 62 Year
  Sex: Female
  Weight: 64.7 kg

DRUGS (11)
  1. CYCLOPHOSPHAMIDE [Suspect]
     Active Substance: CYCLOPHOSPHAMIDE
     Indication: Diffuse large B-cell lymphoma
     Dosage: NS 500ML + CYCLOPHOSPHAMIDE FOR INJECTION 1.2G IV GTT ONCE D2
     Route: 041
     Dates: start: 20220103, end: 20220103
  2. RITUXIMAB [Suspect]
     Active Substance: RITUXIMAB
     Indication: Diffuse large B-cell lymphoma
     Dosage: NS 750ML + RITUXIMAB INJECTION 0.6G, D1
     Route: 041
     Dates: start: 20220102, end: 20220102
  3. VINDESINE SULFATE [Suspect]
     Active Substance: VINDESINE SULFATE
     Indication: Diffuse large B-cell lymphoma
     Dosage: NS 30ML + VINDESINE SULFATE FOR INJECTION 4 MG, D2
     Route: 042
     Dates: start: 20220103, end: 20220103
  4. EPIRUBICIN HYDROCHLORIDE [Suspect]
     Active Substance: EPIRUBICIN HYDROCHLORIDE
     Indication: Diffuse large B-cell lymphoma
     Dosage: STERILE WATER FOR INJECTION 60ML + EPIRUBICIN HYDROCHLORIDE FOR INJECTION 100 MG IV ONCE D2
     Route: 042
     Dates: start: 20220103, end: 20220103
  5. DEXAMETHASONE SODIUM PHOSPHATE [Suspect]
     Active Substance: DEXAMETHASONE SODIUM PHOSPHATE
     Indication: Diffuse large B-cell lymphoma
     Dosage: NS 250ML + DEXAMETHASONE SODIUM PHOSPHATE INJECTION 15 MG IV GTT QD D1-5
     Route: 041
     Dates: start: 20220102, end: 20220106
  6. SODIUM CHLORIDE [Suspect]
     Active Substance: SODIUM CHLORIDE
     Indication: Medication dilution
     Dosage: NS 500ML + CYCLOPHOSPHAMIDE FOR INJECTION 1.2G IV GTT ONCE D2
     Route: 041
     Dates: start: 20220103, end: 20220103
  7. SODIUM CHLORIDE [Suspect]
     Active Substance: SODIUM CHLORIDE
     Dosage: NS 750ML (250 ML + 500 ML) + RITUXIMAB INJECTION 0.6G IV GTT ONCE D1
     Route: 041
     Dates: start: 20220102, end: 20220102
  8. SODIUM CHLORIDE [Suspect]
     Active Substance: SODIUM CHLORIDE
     Dosage: NS 750ML (250 ML + 500 ML) + RITUXIMAB INJECTION 0.6G IV GTT ONCE D1
     Route: 041
     Dates: start: 20220102, end: 20220102
  9. SODIUM CHLORIDE [Suspect]
     Active Substance: SODIUM CHLORIDE
     Dosage: NS 250ML + DEXAMETHASONE SODIUM PHOSPHATE INJECTION 15 MG IV GTT QD D1-5
     Route: 041
     Dates: start: 20220102, end: 20220106
  10. SODIUM CHLORIDE [Suspect]
     Active Substance: SODIUM CHLORIDE
     Indication: Medication dilution
     Dosage: NS 30ML + VINDESINE SULFATE FOR INJECTION 4 MG IV ONCE D2
     Route: 042
     Dates: start: 20220103, end: 20220103
  11. WATER [Suspect]
     Active Substance: WATER
     Indication: Medication dilution
     Dosage: STERILE WATER FOR INJECTION 60ML + EPIRUBICIN HYDROCHLORIDE FOR INJECTION 100 MG IV ONCE D2
     Route: 042
     Dates: start: 20220103, end: 20220103

REACTIONS (3)
  - Intestinal obstruction [Recovered/Resolved]
  - Abdominal pain lower [Recovering/Resolving]
  - Vomiting [Recovering/Resolving]

NARRATIVE: CASE EVENT DATE: 20220107
